FAERS Safety Report 4550641-6 (Version None)
Quarter: 2004Q4

REPORT INFORMATION
  Report Type: 
  Country: None (occurrence: None)
  Receive Date: 20041227
  Receipt Date: 20040903
  Transmission Date: 20050328
  Serious: No
  Sender: FDA-Public Use
  Company Number: 04P-163-0272453-00

PATIENT
  Age: 77 Year
  Sex: Female
  Weight: 61.2356 kg

DRUGS (11)
  1. HUMIRA [Suspect]
     Indication: RHEUMATOID ARTHRITIS
     Dosage: 40 MG, 1 IN 2 WK, SUBCUTANEOUS
     Route: 058
     Dates: start: 20040902
  2. PREDNISONE [Concomitant]
  3. LANSOPRAZOLE [Concomitant]
  4. AMLODIPINE BESYLATE [Concomitant]
  5. DYAZIDE [Concomitant]
  6. LEVOTHYROXINE SODIUM [Concomitant]
  7. ZETIA [Concomitant]
  8. CALCITONIN-SALMON [Concomitant]
  9. CALCIUM GLUCONATE [Concomitant]
  10. MULTIVITAMIN [Concomitant]
  11. TOCOPHEROL CONCENTRATE CAP [Concomitant]

REACTIONS (1)
  - VISION BLURRED [None]
